FAERS Safety Report 9919189 (Version 3)
Quarter: 2014Q1

REPORT INFORMATION
  Report Type: Spontaneous
  Country: CH (occurrence: CH)
  Receive Date: 20140224
  Receipt Date: 20140306
  Transmission Date: 20141002
  Serious: Yes (Hospitalization)
  Sender: FDA-Public Use
  Company Number: CH-PFIZER INC-2014048810

PATIENT
  Age: 66 Year
  Sex: Female
  Weight: 65 kg

DRUGS (13)
  1. CAMPTO [Suspect]
     Indication: PANCREATIC CARCINOMA RECURRENT
     Dosage: 300 MG, CYCLIC (DAY 1 OF CYCLE, CYCLE = 14 DAYS)
     Route: 041
     Dates: start: 20140122, end: 20140122
  2. LEVOLEUCOVORIN CALCIUM [Suspect]
     Indication: PANCREATIC CARCINOMA RECURRENT
     Dosage: 200 MG, CYCLIC (DAY 1 OF CYCLE, CYCLE = 14 DAYS)
     Route: 041
     Dates: start: 20140122, end: 20140122
  3. ELOXATIN [Suspect]
     Indication: PANCREATIC CARCINOMA RECURRENT
     Dosage: 140 MG, CYCLIC (DAY 1 OF CYCLE, CYCLE = 14 DAYS)
     Route: 041
     Dates: start: 20140122, end: 20140122
  4. 5-FLUOROURACIL ^BIOSYN^ [Suspect]
     Indication: PANCREATIC CARCINOMA RECURRENT
     Dosage: 600 MG, CYCLIC (DAY 1 OF CYCLE, CYCLE = 14 DAYS)
     Route: 040
     Dates: start: 20140122, end: 20140122
  5. 5-FLUOROURACIL ^BIOSYN^ [Suspect]
     Dosage: 2000 MG, DAILY (CONTINOUSLY OVER 24 HOURS, DAY 1 AND 2 OF CYCLE)
     Route: 041
     Dates: start: 20140122, end: 20140123
  6. COAPROVEL [Concomitant]
     Dosage: 1 DF (150/12.5 MG), 1X/DAY
     Route: 048
  7. ACETYLSALICYLIC ACID [Concomitant]
     Dosage: 100 MG, 1X/DAY
     Route: 048
  8. DIAMICRON MR [Concomitant]
     Dosage: 60 MG, 1X/DAY
     Route: 048
  9. BELOC ZOK [Concomitant]
     Dosage: 50 MG, 1X/DAY
     Route: 048
  10. SORTIS [Concomitant]
     Dosage: 20 MG, 1X/DAY
     Route: 048
  11. AMLODIPINE [Concomitant]
     Dosage: 10 MG, 1X/DAY
     Route: 048
  12. PANTOZOL [Concomitant]
     Dosage: 20 MG, 1X/DAY
     Route: 048
  13. JANUMET [Concomitant]
     Dosage: 1 DF (50/1000 MG), 2X/DAY
     Route: 048

REACTIONS (6)
  - Neutropenic colitis [Recovering/Resolving]
  - Febrile neutropenia [Recovered/Resolved]
  - Diarrhoea [Recovering/Resolving]
  - Vomiting [Recovered/Resolved]
  - Nausea [Recovering/Resolving]
  - Abdominal pain [Unknown]
